FAERS Safety Report 25456526 (Version 2)
Quarter: 2025Q2

REPORT INFORMATION
  Report Type: Spontaneous
  Country: CN (occurrence: CN)
  Receive Date: 20250619
  Receipt Date: 20250620
  Transmission Date: 20250717
  Serious: Yes (Other)
  Sender: MERCK SHARP & DOHME LLC
  Company Number: CN-009507513-2297563

PATIENT
  Age: 59 Year
  Sex: Male

DRUGS (16)
  1. PEMBROLIZUMAB [Suspect]
     Active Substance: PEMBROLIZUMAB
     Indication: Non-small cell lung cancer
     Dosage: 200 MILLIGRAM(S), INTRAVENOUS (NOT OTHERWISE SPECIFIED), 1 EVERY 3 WEEK
     Route: 042
     Dates: start: 20241106, end: 20250312
  2. PEMETREXED [Suspect]
     Active Substance: PEMETREXED
     Indication: Non-small cell lung cancer
     Dosage: 795 MILLIGRAM(S), INTRAVENOUS(NOT OTHERWISE SPECIFIED), 1 EVERY 3 WEEK; DOSE WAS REDUCED TO 375 M...
     Route: 042
     Dates: start: 20241106, end: 20250312
  3. COBAMAMIDE [Concomitant]
     Active Substance: COBAMAMIDE
  4. FOLIC ACID [Concomitant]
     Active Substance: FOLIC ACID
  5. DEXAMETHASONE [Concomitant]
     Active Substance: DEXAMETHASONE
  6. ONDANSETRON [Concomitant]
     Active Substance: ONDANSETRON
  7. FAMOTIDINE [Concomitant]
     Active Substance: FAMOTIDINE
  8. RECOMBINANT HUMAN THROMBOPOIETIN [Concomitant]
     Active Substance: RECOMBINANT HUMAN THROMBOPOIETIN
  9. AMLODIPINE\VALSARTAN [Concomitant]
     Active Substance: AMLODIPINE\VALSARTAN
  10. PHOSPHOLIPID [Concomitant]
     Active Substance: PHOSPHOLIPID
  11. AMOXICILLIN [Concomitant]
     Active Substance: AMOXICILLIN
  12. DICLOFENAC SODIUM [Concomitant]
     Active Substance: DICLOFENAC SODIUM
  13. SODIUM POTASSIUM MAGNESIUM CALCIUM AND GLUCOSE [Concomitant]
  14. ROSUVASTATIN CALCIUM [Concomitant]
     Active Substance: ROSUVASTATIN CALCIUM
  15. NETUPITANT AND PALONOSETRON HYDROCHLORIDE [Concomitant]
  16. BICYCLOL [Concomitant]
     Active Substance: BICYCLOL

REACTIONS (1)
  - Alanine aminotransferase increased [Recovered/Resolved]

NARRATIVE: CASE EVENT DATE: 20250203
